FAERS Safety Report 17806543 (Version 1)
Quarter: 2020Q2

REPORT INFORMATION
  Report Type: Spontaneous
  Country: US (occurrence: US)
  Receive Date: 20200519
  Receipt Date: 20200519
  Transmission Date: 20200714
  Serious: Yes (Other)
  Sender: FDA-Public Use
  Company Number: None

PATIENT
  Age: 49 Year
  Sex: Male
  Weight: 84.6 kg

DRUGS (6)
  1. PREDNISONE 20MG [Concomitant]
     Active Substance: PREDNISONE
  2. ZELBORAF [Suspect]
     Active Substance: VEMURAFENIB
     Indication: MALIGNANT MELANOMA
     Route: 048
     Dates: start: 20200211, end: 20200428
  3. STIOLTO RESPIMAT [Concomitant]
     Active Substance: OLODATEROL HYDROCHLORIDE\TIOTROPIUM BROMIDE MONOHYDRATE
  4. TYLENOL [Concomitant]
     Active Substance: ACETAMINOPHEN
  5. ALBUTEROL SULFATE 2.5MG/3ML [Concomitant]
  6. ASPIRIN 81MG [Concomitant]
     Active Substance: ASPIRIN

REACTIONS (1)
  - Hospice care [None]

NARRATIVE: CASE EVENT DATE: 20200428
